FAERS Safety Report 22607192 (Version 2)
Quarter: 2023Q2

REPORT INFORMATION
  Report Type: Report from Study
  Country: US (occurrence: US)
  Receive Date: 20230615
  Receipt Date: 20230630
  Transmission Date: 20230721
  Serious: No
  Sender: FDA-Public Use
  Company Number: US-JNJFOC-20230626206

PATIENT
  Age: 34 Year
  Sex: Male

DRUGS (9)
  1. SPRAVATO [Suspect]
     Active Substance: ESKETAMINE
     Indication: Depression
     Dosage: 56 MG, 1 TOTAL DOSES
     Dates: start: 20230522, end: 20230522
  2. SPRAVATO [Suspect]
     Active Substance: ESKETAMINE
     Dosage: 84 MG, 4 TOTAL DOSES
     Dates: start: 20230523, end: 20230601
  3. SPRAVATO [Suspect]
     Active Substance: ESKETAMINE
     Dosage: 84 MG, 1 TOTAL DOSES
     Dates: start: 20230606, end: 20230606
  4. ARIPIPRAZOLE [Concomitant]
     Active Substance: ARIPIPRAZOLE
     Indication: Major depression
     Route: 048
     Dates: start: 20230118
  5. ARIPIPRAZOLE [Concomitant]
     Active Substance: ARIPIPRAZOLE
     Indication: Generalised anxiety disorder
  6. CLONAZEPAM [Concomitant]
     Active Substance: CLONAZEPAM
     Indication: Generalised anxiety disorder
     Route: 048
     Dates: start: 20220729
  7. CLONAZEPAM [Concomitant]
     Active Substance: CLONAZEPAM
     Indication: Major depression
  8. PROPRANOLOL [Concomitant]
     Active Substance: PROPRANOLOL HYDROCHLORIDE
     Indication: Major depression
     Route: 048
     Dates: start: 20230602
  9. PROPRANOLOL [Concomitant]
     Active Substance: PROPRANOLOL HYDROCHLORIDE
     Indication: Generalised anxiety disorder

REACTIONS (1)
  - Panic attack [Recovered/Resolved]

NARRATIVE: CASE EVENT DATE: 20230606
